FAERS Safety Report 9702378 (Version 1)
Quarter: 2013Q4

REPORT INFORMATION
  Report Type: Spontaneous
  Country: GB (occurrence: GB)
  Receive Date: 20131121
  Receipt Date: 20131121
  Transmission Date: 20140711
  Serious: Yes (Disabling, Other)
  Sender: FDA-Public Use
  Company Number: GB-PFIZER INC-2013329311

PATIENT
  Age: 77 Year
  Sex: 0

DRUGS (8)
  1. SERTRALINE HCL [Suspect]
     Dosage: 50 MG, 1X/DAY
     Route: 048
     Dates: start: 20131011, end: 20131030
  2. SPIRONOLACTONE [Concomitant]
     Dosage: 25 MG, 1X/DAY IN THE MORNING
     Route: 048
  3. BISOPROLOL [Concomitant]
     Dosage: 10 MG, 1X/DAY IN THE MORNING
     Route: 048
  4. THIAMINE [Concomitant]
     Dosage: 100 MG, 1X/DAY IN THE MORNING
     Route: 048
  5. DIGOXIN [Concomitant]
     Dosage: 125 UG, UNK (IN THE MORNING)
  6. ISOSORBIDE MONONITRATE [Concomitant]
     Dosage: 20 MG, 2X/DAY
     Route: 048
  7. FUROSEMIDE [Concomitant]
     Dosage: 40 MG, 2X/DAY
     Route: 048
  8. GABAPENTIN [Concomitant]
     Dosage: 300 MG, 1X/DAY AT NIGHT
     Route: 048

REACTIONS (1)
  - Restless legs syndrome [Recovered/Resolved]
